FAERS Safety Report 5380904-6 (Version None)
Quarter: 2007Q3

REPORT INFORMATION
  Report Type: 
  Country: None (occurrence: None)
  Receive Date: 20070706
  Receipt Date: 20070627
  Transmission Date: 20080115
  Serious: Yes (Other)
  Sender: FDA-Public Use
  Company Number: BR-ASTRAZENECA-2007UW13064

PATIENT
  Age: 40 Year
  Sex: Female
  Weight: 81 kg

DRUGS (5)
  1. ZOLADEX [Suspect]
     Indication: ENDOMETRIOSIS
     Route: 058
     Dates: start: 20061217, end: 20070217
  2. FLUOXETINA [Concomitant]
     Indication: DEPRESSION
     Dosage: 10-15 MG
     Route: 048
     Dates: start: 20060101
  3. FLUOXETINA [Concomitant]
     Route: 048
  4. BIRTH CONTROL PILLS [Concomitant]
  5. LUPRON [Concomitant]
     Dates: start: 19990101

REACTIONS (7)
  - AMENORRHOEA [None]
  - ANXIETY [None]
  - DEPRESSION [None]
  - HOT FLUSH [None]
  - INCREASED APPETITE [None]
  - IRRITABILITY [None]
  - WEIGHT INCREASED [None]
